FAERS Safety Report 10760715 (Version 1)
Quarter: 2015Q1

REPORT INFORMATION
  Report Type: Spontaneous
  Country: RU (occurrence: RU)
  Receive Date: 20150204
  Receipt Date: 20150204
  Transmission Date: 20150721
  Serious: Yes (Death)
  Sender: FDA-Public Use
  Company Number: RU-TEVA-536327ISR

PATIENT
  Age: 15 Year
  Sex: Female

DRUGS (2)
  1. VENTOLIN [Suspect]
     Active Substance: ALBUTEROL SULFATE
  2. SALBUTAMOL-TEVA [Suspect]
     Active Substance: ALBUTEROL
     Dosage: 200 DOSAGES

REACTIONS (2)
  - Status asthmaticus [Fatal]
  - Drug ineffective [Unknown]
